FAERS Safety Report 4332745-6 (Version None)
Quarter: 2004Q1

REPORT INFORMATION
  Report Type: 
  Country: None (occurrence: None)
  Receive Date: 20040330
  Receipt Date: 20040315
  Transmission Date: 20041129
  Serious: Yes (Hospitalization)
  Sender: FDA-Public Use
  Company Number: A04200400251

PATIENT
  Age: 66 Year
  Sex: Male

DRUGS (6)
  1. ELOXATIN [Suspect]
     Indication: METASTATIC NEOPLASM
     Dosage: A FEW HOURS - TIME TO ONSET : 0 MONTHS
     Route: 041
     Dates: start: 20030801, end: 20030801
  2. FLUOROURACIL [Suspect]
     Indication: METASTATIC NEOPLASM
     Dosage: 1 DAY - TIME TO ONSET : 0 MONTHS
     Route: 041
     Dates: start: 20030801, end: 20030801
  3. CLEXANE - (HEPARIN-FRACTION, SODIUM SALT) - SOLUTION [Suspect]
     Indication: MOBILITY DECREASED
     Dosage: 4000 IU AXA OD; TIME TO ONSET: 5 WEEKS 1 DAY
     Route: 058
     Dates: start: 20030720
  4. IMODIUM [Concomitant]
  5. KALINOR (POTASSIUM CHLORIDE) [Concomitant]
  6. NOVALDIN INJ [Concomitant]

REACTIONS (6)
  - ANAEMIA [None]
  - DUODENAL ULCER HAEMORRHAGE [None]
  - GASTRIC DISORDER [None]
  - GASTRITIS EROSIVE [None]
  - RECTAL HAEMORRHAGE [None]
  - VARICES OESOPHAGEAL [None]
